FAERS Safety Report 9518103 (Version 1)
Quarter: 2013Q1

REPORT INFORMATION
  Report Type: Spontaneous
  Country: US (occurrence: None)
  Receive Date: 20130305
  Receipt Date: 20130305
  Transmission Date: 20140127
  Serious: No
  Sender: FDA-Public Use
  Company Number: 1663-21880-12120513

PATIENT
  Age: 81 Year
  Sex: Female

DRUGS (10)
  1. REVLIMID (LENALIDOMIDE) (CAPSULES) [Suspect]
     Indication: PLASMA CELL MYELOMA
     Route: 048
     Dates: start: 20120723
  2. DEXAMETHASONE (DEXAMETHASONE) (UNKNOWN) [Concomitant]
  3. GABAPENTIN (GABAPENTIN) (UNKNOWN) (GABAPENTIN) [Concomitant]
  4. OMEPRAZOLE (OMEPRAZOLE) (UNKNOWN) [Concomitant]
  5. CIPRO (CIPROFLOXACIN) (UNKNOWN) [Concomitant]
  6. METRONDAZOLE (METRONDAZOLE)(UNKNOWN) [Concomitant]
  7. ZOLPIDEM (ZOLPIDEM) (UNKNOWN) (ZOLPIDEM) [Concomitant]
  8. KCL (POTASSSIUM CHLORIDE) (UNKNOWN) [Concomitant]
  9. CARVEDILOL (CARVEDILOL)(UNKNOWN) [Concomitant]
  10. WARFARIN (WARFARIN SODIUM) (UNKNOWN) [Concomitant]

REACTIONS (5)
  - Fatigue [None]
  - Lethargy [None]
  - White blood cell count decreased [None]
  - Decreased appetite [None]
  - Weight decreased [None]
